FAERS Safety Report 10597780 (Version 1)
Quarter: 2014Q4

REPORT INFORMATION
  Report Type: Report from Study
  Country: DE (occurrence: DE)
  Receive Date: 20141121
  Receipt Date: 20141121
  Transmission Date: 20150529
  Serious: Yes (Hospitalization)
  Sender: FDA-Public Use
  Company Number: DE-ROCHE-1493912

PATIENT
  Age: 72 Year
  Sex: Female
  Weight: 57 kg

DRUGS (3)
  1. DOXORUBICIN [Suspect]
     Active Substance: DOXORUBICIN
     Indication: OVARIAN CANCER
     Dosage: DATE OF LAST DOSE PRIOR TO THE ADVERSE EVENT WAS 14/OCT/2014.
     Route: 042
     Dates: start: 20140516
  2. CARBOPLATIN. [Suspect]
     Active Substance: CARBOPLATIN
     Indication: OVARIAN CANCER
     Dosage: DATE OF LAST DOSE PRIOR TO THE ADVERSE EVENT WAS 14/OCT/2014.
     Route: 042
     Dates: start: 20140516
  3. BEVACIZUMAB [Suspect]
     Active Substance: BEVACIZUMAB
     Indication: OVARIAN CANCER
     Dosage: DATE OF LAST DOSE PRIOR TO ADVERSE EVENT WAS 12/11/2014.
     Route: 042
     Dates: start: 20140516

REACTIONS (1)
  - General physical health deterioration [Recovering/Resolving]

NARRATIVE: CASE EVENT DATE: 20141119
